FAERS Safety Report 5076270-6 (Version None)
Quarter: 2006Q3

REPORT INFORMATION
  Report Type: 
  Country: None (occurrence: None)
  Receive Date: 20060804
  Receipt Date: 20060803
  Transmission Date: 20061208
  Serious: Yes (Other)
  Sender: FDA-Public Use
  Company Number: 222644

PATIENT
  Sex: Female

DRUGS (1)
  1. MABTHERA                     (RITUXIMAB) [Suspect]
     Indication: FACTOR VIII DEFICIENCY

REACTIONS (1)
  - ANAPHYLACTIC REACTION [None]
